FAERS Safety Report 16027019 (Version 1)
Quarter: 2019Q1

REPORT INFORMATION
  Report Type: Spontaneous
  Country: US (occurrence: US)
  Receive Date: 20190303
  Receipt Date: 20190303
  Transmission Date: 20190418
  Serious: No
  Sender: FDA-Public Use
  Company Number: US-IMPAX LABORATORIES, LLC-2018-IPXL-00394

PATIENT
  Age: 77 Year
  Sex: Male

DRUGS (4)
  1. RYTARY [Suspect]
     Active Substance: CARBIDOPA\LEVODOPA
     Indication: PARKINSON^S DISEASE
     Dosage: 48.75/195 MG 3 CAPSULES 4-5 TIMES A DAY
     Route: 048
     Dates: start: 20180112, end: 2018
  2. RYTARY [Suspect]
     Active Substance: CARBIDOPA\LEVODOPA
     Dosage: 48.75/195 MG 2 CAPSULES 4-5 TIMES A DAY
     Route: 048
     Dates: start: 2018
  3. SINEMET [Suspect]
     Active Substance: CARBIDOPA\LEVODOPA
     Indication: PARKINSON^S DISEASE
     Dosage: 18-20 TABLETS PER DAY
     Route: 065
     Dates: start: 2008
  4. SINEMET [Suspect]
     Active Substance: CARBIDOPA\LEVODOPA
     Dosage: 2 PILLS 4 TIMES A DAY AND 1 PILL AT NIGHT
     Route: 065
     Dates: start: 2018

REACTIONS (1)
  - Tremor [Not Recovered/Not Resolved]
